APPROVED DRUG PRODUCT: LAMICTAL ODT
Active Ingredient: LAMOTRIGINE
Strength: 200MG
Dosage Form/Route: TABLET, ORALLY DISINTEGRATING;ORAL
Application: N022251 | Product #004 | TE Code: AB
Applicant: GLAXOSMITHKLINE LLC
Approved: May 8, 2009 | RLD: Yes | RS: No | Type: RX